FAERS Safety Report 24999646 (Version 4)
Quarter: 2025Q2

REPORT INFORMATION
  Report Type: Spontaneous
  Country: US (occurrence: US)
  Receive Date: 20250222
  Receipt Date: 20250511
  Transmission Date: 20250716
  Serious: No
  Sender: SANOFI AVENTIS
  Company Number: US-SA-2025SA048408

PATIENT
  Age: 64 Year
  Sex: Female
  Weight: 67.27 kg

DRUGS (3)
  1. CEREZYME [Suspect]
     Active Substance: IMIGLUCERASE
     Indication: Gaucher^s disease type I
     Dosage: 1600 U, Q3W
     Route: 042
     Dates: start: 201904
  2. STERILE WATER [Concomitant]
     Active Substance: WATER
  3. EPINEPHRINE [Concomitant]
     Active Substance: EPINEPHRINE

REACTIONS (3)
  - Poor venous access [Recovered/Resolved]
  - Weight fluctuation [Not Recovered/Not Resolved]
  - Catheter site discomfort [Unknown]

NARRATIVE: CASE EVENT DATE: 20250101
